FAERS Safety Report 6248610-3 (Version None)
Quarter: 2009Q2

REPORT INFORMATION
  Report Type: 
  Country: None (occurrence: None)
  Receive Date: 20090624
  Receipt Date: 20090330
  Transmission Date: 20091009
  Serious: Yes (Other)
  Sender: FDA-Public Use
  Company Number: US-1168868

PATIENT
  Sex: Female
  Weight: 70.3075 kg

DRUGS (7)
  1. TRIESENCE [Suspect]
     Dosage: (INTRAOCULAR)
     Route: 031
     Dates: start: 20090202, end: 20090202
  2. PROVENTIL-HFA [Concomitant]
  3. FUROSEMIDE [Concomitant]
  4. DILTIAZEM [Concomitant]
  5. WARFARIN SODIUM [Concomitant]
  6. METFORMIN HCL [Concomitant]
  7. DIOVAN [Concomitant]

REACTIONS (1)
  - VISUAL ACUITY REDUCED [None]
